FAERS Safety Report 6916576-6 (Version None)
Quarter: 2010Q3

REPORT INFORMATION
  Report Type: 
  Country: None (occurrence: None)
  Receive Date: 20100809
  Receipt Date: 20100809
  Transmission Date: 20110219
  Serious: Yes (Other)
  Sender: FDA-Public Use
  Company Number: None

PATIENT
  Age: 1 Year
  Weight: 1 kg

DRUGS (1)
  1. ETOMIDATE [Suspect]
     Indication: SURGERY
     Dosage: INDIVIDUAL IV BOLUS
     Route: 040
     Dates: start: 20100601, end: 20100806

REACTIONS (1)
  - PHLEBITIS [None]
